FAERS Safety Report 6312882-7 (Version None)
Quarter: 2009Q3

REPORT INFORMATION
  Report Type: 
  Country: None (occurrence: None)
  Receive Date: 20090818
  Receipt Date: 20090806
  Transmission Date: 20100115
  Serious: Yes (Life-Threatening)
  Sender: FDA-Public Use
  Company Number: FR-TYCO HEALTHCARE/MALLINCKRODT-T200901474

PATIENT

DRUGS (1)
  1. OPTIJECT [Suspect]
     Indication: COMPUTERISED TOMOGRAM
     Dosage: 100 ML, SINGLE
     Route: 042
     Dates: start: 20090525, end: 20090525

REACTIONS (4)
  - ANAPHYLACTIC SHOCK [None]
  - EYE ROLLING [None]
  - OXYGEN SATURATION DECREASED [None]
  - SKIN DISORDER [None]
